FAERS Safety Report 26140811 (Version 2)
Quarter: 2025Q4

REPORT INFORMATION
  Report Type: Spontaneous
  Country: US (occurrence: US)
  Receive Date: 20251210
  Receipt Date: 20251231
  Transmission Date: 20260117
  Serious: Yes (Hospitalization)
  Sender: TEVA
  Company Number: US-TEVA-VS-3399628

PATIENT
  Age: 59 Year
  Sex: Male

DRUGS (2)
  1. CIPROFLOXACIN [Suspect]
     Active Substance: CIPROFLOXACIN
     Indication: Ear infection
     Route: 001
  2. CIPROFLOXACIN [Suspect]
     Active Substance: CIPROFLOXACIN
     Indication: Ear infection
     Route: 048

REACTIONS (2)
  - Hypoglycaemia [Recovered/Resolved]
  - Neuroglycopenia [Unknown]
